FAERS Safety Report 16924118 (Version 1)
Quarter: 2019Q4

REPORT INFORMATION
  Report Type: Spontaneous
  Country: US (occurrence: US)
  Receive Date: 20191016
  Receipt Date: 20191016
  Transmission Date: 20200122
  Serious: Yes (Death, Hospitalization)
  Sender: FDA-Public Use
  Company Number: US-PFIZER INC-2019441321

PATIENT
  Age: 35 Year
  Sex: Male
  Weight: 50.23 kg

DRUGS (15)
  1. LINEZOLID. [Suspect]
     Active Substance: LINEZOLID
     Dosage: 600 MG, 1X/DAY
     Dates: start: 20180222, end: 20190709
  2. LINEZOLID. [Suspect]
     Active Substance: LINEZOLID
     Dosage: 600 MG, 1X/DAY
     Dates: start: 20190808, end: 20190822
  3. CYCLOSERINE. [Suspect]
     Active Substance: CYCLOSERINE
     Dosage: 750 MG, 1X/DAY
     Dates: end: 20190822
  4. AMIKACIN SULFATE. [Suspect]
     Active Substance: AMIKACIN SULFATE
     Dosage: 750 MG, 1X/DAY
     Dates: end: 20190822
  5. CILASTATIN/IMIPENEM [Suspect]
     Active Substance: CILASTATIN SODIUM\IMIPENEM
     Dosage: 2000 MG, 1X/DAY
     Dates: end: 20190822
  6. ETHIONAMIDE [Suspect]
     Active Substance: ETHIONAMIDE
     Dosage: 500 MG, 1X/DAY
     Dates: start: 20180222, end: 20190709
  7. OMEPRAZOLE. [Concomitant]
     Active Substance: OMEPRAZOLE
     Dosage: UNK
     Dates: start: 20190610
  8. TRANSAMIN [Concomitant]
     Active Substance: TRANEXAMIC ACID
     Dosage: UNK
     Dates: start: 20190610
  9. ETHIONAMIDE [Suspect]
     Active Substance: ETHIONAMIDE
     Dosage: 750 MG, 1X/DAY
     Dates: start: 20190808, end: 20190822
  10. DEXTROMETHORPHAN [Concomitant]
     Active Substance: DEXTROMETHORPHAN
     Dosage: UNK
     Dates: start: 20190610
  11. PYRAZINAMIDE. [Concomitant]
     Active Substance: PYRAZINAMIDE
     Dosage: 1250 MG, 1X/DAY
     Dates: start: 20180222, end: 20190709
  12. CLOFAZIMINE [Concomitant]
     Active Substance: CLOFAZIMINE
     Dosage: 100 MG, 1X/DAY
     Dates: start: 20180222, end: 20190709
  13. AMOXICILLIN CLAVULANIC ACID [Suspect]
     Active Substance: AMOXICILLIN\CLAVULANIC ACID
     Dosage: 200 MG, 1X/DAY
     Dates: end: 20190822
  14. DELAMANID [Suspect]
     Active Substance: DELAMANID
     Dosage: 200 MG, 1X/DAY
     Dates: end: 20190822
  15. THIORIDAZINE [Suspect]
     Active Substance: THIORIDAZINE
     Dosage: 150 MG, 1X/DAY
     Dates: end: 20190822

REACTIONS (1)
  - Haemoptysis [Fatal]

NARRATIVE: CASE EVENT DATE: 20190624
